FAERS Safety Report 7802540-1 (Version None)
Quarter: 2011Q4

REPORT INFORMATION
  Report Type: 
  Country: None (occurrence: None)
  Receive Date: 20111007
  Receipt Date: 20110930
  Transmission Date: 20120403
  Serious: Yes (Other)
  Sender: FDA-Public Use
  Company Number: GB-TEVA-303059ISR

PATIENT
  Age: 26 Year
  Sex: Female

DRUGS (1)
  1. TERBINAFINE HCL [Suspect]
     Route: 048

REACTIONS (2)
  - ALCOHOL INTERACTION [None]
  - MALAISE [None]
